FAERS Safety Report 11582925 (Version 6)
Quarter: 2018Q2

REPORT INFORMATION
  Report Type: Report from Study
  Country: BR (occurrence: BR)
  Receive Date: 20151001
  Receipt Date: 20180509
  Transmission Date: 20180711
  Serious: Yes (Hospitalization, Other)
  Sender: FDA-Public Use
  Company Number: BR-ROCHE-1428022

PATIENT
  Age: 56 Year
  Sex: Female
  Weight: 54 kg

DRUGS (7)
  1. PREDNISONE. [Suspect]
     Active Substance: PREDNISONE
     Indication: OSTEOARTHRITIS
     Route: 048
  2. PANTOPRAZOLE [Concomitant]
     Active Substance: PANTOPRAZOLE
  3. PREDNISONE. [Suspect]
     Active Substance: PREDNISONE
     Indication: RHEUMATOID ARTHRITIS
     Route: 048
  4. KETOROLAC [Concomitant]
     Active Substance: KETOROLAC\KETOROLAC TROMETHAMINE
  5. ACTEMRA [Suspect]
     Active Substance: TOCILIZUMAB
     Indication: RHEUMATOID ARTHRITIS
     Dosage: LATEST INFUSION ON 26/JUN/2014, 22/NOV/2016, 18/JUN/2017
     Route: 042
     Dates: start: 20140101
  6. ALGINAC [Concomitant]
     Active Substance: CYANOCOBALAMIN\DICLOFENAC SODIUM\PYRIDOXINE HYDROCHLORIDE\THIAMINE MONONITRATE
  7. CELEBRA [Concomitant]
     Active Substance: CELECOXIB

REACTIONS (13)
  - Osteoarthritis [Unknown]
  - Leukocyturia [Recovered/Resolved]
  - Cholelithiasis [Recovered/Resolved]
  - Arthropathy [Unknown]
  - Joint swelling [Recovered/Resolved]
  - Cystitis [Unknown]
  - Bone disorder [Unknown]
  - Umbilical hernia [Recovered/Resolved]
  - Peripheral swelling [Not Recovered/Not Resolved]
  - Immunodeficiency [Unknown]
  - Pain [Not Recovered/Not Resolved]
  - Arthralgia [Recovered/Resolved]
  - Gait disturbance [Not Recovered/Not Resolved]

NARRATIVE: CASE EVENT DATE: 201405
